FAERS Safety Report 17628661 (Version 1)
Quarter: 2020Q2

REPORT INFORMATION
  Report Type: Spontaneous
  Country: US (occurrence: US)
  Receive Date: 20200406
  Receipt Date: 20200406
  Transmission Date: 20200713
  Serious: No
  Sender: FDA-Public Use
  Company Number: US-ASTRAZENECA-2020SE45981

PATIENT
  Age: 6 Month
  Sex: Female
  Weight: 7 kg

DRUGS (6)
  1. POLY-VI-SOL [Concomitant]
     Active Substance: VITAMINS
  2. SILDENAFIL. [Concomitant]
     Active Substance: SILDENAFIL
  3. SYNAGIS [Suspect]
     Active Substance: PALIVIZUMAB
     Indication: RESPIRATORY SYNCYTIAL VIRUS INFECTION
     Route: 030
     Dates: start: 201911
  4. SALINE NASAL SPRAY [Concomitant]
     Active Substance: SODIUM CHLORIDE
  5. SIMETHICONE (DIMETHICONE) [Concomitant]
     Active Substance: DIMETHICONE
  6. INFANTS GAS RELIE [Concomitant]

REACTIONS (2)
  - Influenza [Unknown]
  - Inappropriate schedule of product administration [Unknown]
